FAERS Safety Report 5906603-7 (Version None)
Quarter: 2008Q4

REPORT INFORMATION
  Report Type: 
  Country: None (occurrence: None)
  Receive Date: 20081002
  Receipt Date: 20080923
  Transmission Date: 20090506
  Serious: Yes (Hospitalization, Other)
  Sender: FDA-Public Use
  Company Number: US-ELI_LILLY_AND_COMPANY-US200809005381

PATIENT
  Sex: Male

DRUGS (5)
  1. BYETTA [Suspect]
     Indication: TYPE 2 DIABETES MELLITUS
     Dosage: 5 UG, 2/D
     Route: 058
     Dates: start: 20050601, end: 20071201
  2. BYETTA [Suspect]
     Dosage: 10 UG, 2/D
     Route: 058
     Dates: start: 20071201
  3. METFORMIN HCL [Concomitant]
     Indication: TYPE 2 DIABETES MELLITUS
     Dosage: 2000 MG, DAILY (1/D)
     Route: 048
     Dates: start: 20010101
  4. GLIPIZIDE [Concomitant]
     Indication: TYPE 2 DIABETES MELLITUS
     Dosage: 10 MG, 2/D
     Route: 048
     Dates: start: 20010101
  5. ACTOS [Concomitant]
     Indication: TYPE 2 DIABETES MELLITUS
     Route: 048
     Dates: start: 20080501, end: 20080801

REACTIONS (20)
  - ARTHRALGIA [None]
  - BLOOD GLUCOSE INCREASED [None]
  - BLOOD PRESSURE INCREASED [None]
  - DECREASED APPETITE [None]
  - EXOSTOSIS [None]
  - FALL [None]
  - FEELING COLD [None]
  - HEAD INJURY [None]
  - HEADACHE [None]
  - HEMIPLEGIA [None]
  - LOCAL SWELLING [None]
  - LOSS OF CONSCIOUSNESS [None]
  - OEDEMA PERIPHERAL [None]
  - PHLEBITIS [None]
  - POST-TRAUMATIC HEADACHE [None]
  - SINUS DISORDER [None]
  - SKIN DISCOLOURATION [None]
  - SPINAL CORD INJURY [None]
  - VOMITING [None]
  - WEIGHT INCREASED [None]
